FAERS Safety Report 18090953 (Version 1)
Quarter: 2020Q3

REPORT INFORMATION
  Report Type: Spontaneous
  Country: US (occurrence: US)
  Receive Date: 20200729
  Receipt Date: 20200729
  Transmission Date: 20201103
  Serious: No
  Sender: FDA-Public Use
  Company Number: None

PATIENT
  Age: 80 Year
  Sex: Male
  Weight: 110.5 kg

DRUGS (16)
  1. REMDESIVIR. [Suspect]
     Active Substance: REMDESIVIR
     Indication: COVID-19
     Route: 042
     Dates: start: 20200722, end: 20200723
  2. BUDESONIDE. [Concomitant]
     Active Substance: BUDESONIDE
     Dates: start: 20200723
  3. PANTOPRAZOLE [Concomitant]
     Active Substance: PANTOPRAZOLE
     Dates: start: 20200721
  4. CHOLECALCIFEROL [Concomitant]
     Active Substance: CHOLECALCIFEROL
     Dates: start: 20200721
  5. ASCORBIC ACID. [Concomitant]
     Active Substance: ASCORBIC ACID
     Dates: start: 20200721
  6. MEMANTINE. [Concomitant]
     Active Substance: MEMANTINE
     Dates: start: 20200721
  7. ATORVASTATIN [Concomitant]
     Active Substance: ATORVASTATIN
     Dates: start: 20200721, end: 20200723
  8. METOPROLOL. [Concomitant]
     Active Substance: METOPROLOL
     Dates: start: 20200722
  9. REMDESIVIR 100 MG [Concomitant]
     Active Substance: REMDESIVIR
     Dates: start: 20200723, end: 20200723
  10. APIXABAN [Concomitant]
     Active Substance: APIXABAN
     Dates: start: 20200721
  11. ZINC. [Concomitant]
     Active Substance: ZINC
     Dates: start: 20200721
  12. ALBUTEROL. [Concomitant]
     Active Substance: ALBUTEROL
     Dates: start: 20200723, end: 20200724
  13. DEXAMETHASONE. [Concomitant]
     Active Substance: DEXAMETHASONE
     Dates: start: 20200721
  14. LEVOTHYROXINE. [Concomitant]
     Active Substance: LEVOTHYROXINE
     Dates: start: 20200722
  15. REMDESIVIR 200 MG [Concomitant]
     Active Substance: REMDESIVIR
     Dates: start: 20200722, end: 20200722
  16. LEVOFLOXACIN. [Concomitant]
     Active Substance: LEVOFLOXACIN
     Dates: start: 20200723, end: 20200729

REACTIONS (1)
  - Alanine aminotransferase increased [None]

NARRATIVE: CASE EVENT DATE: 20200723
